FAERS Safety Report 13631789 (Version 2)
Quarter: 2017Q2

REPORT INFORMATION
  Report Type: Spontaneous
  Country: BR (occurrence: BR)
  Receive Date: 20170608
  Receipt Date: 20170626
  Transmission Date: 20170830
  Serious: Yes (Hospitalization)
  Sender: FDA-Public Use
  Company Number: BR-BIOMARINAP-BR-2017-114263

PATIENT
  Age: 11 Year
  Sex: Female
  Weight: 50 kg

DRUGS (2)
  1. ALDURAZYME [Suspect]
     Active Substance: LARONIDASE
     Indication: MUCOPOLYSACCHARIDOSIS I
     Dosage: UNK
     Route: 041
     Dates: start: 20120101, end: 20170519
  2. ALDURAZYME [Suspect]
     Active Substance: LARONIDASE
     Dosage: UNK
     Route: 041
     Dates: start: 20170609

REACTIONS (4)
  - Off label use [Unknown]
  - Pneumonia [Recovering/Resolving]
  - Influenza [Not Recovered/Not Resolved]
  - Dyspnoea [Recovering/Resolving]
